FAERS Safety Report 5916446-6 (Version None)
Quarter: 2008Q4

REPORT INFORMATION
  Report Type: 
  Country: None (occurrence: None)
  Receive Date: 20081013
  Receipt Date: 20081006
  Transmission Date: 20090506
  Serious: Yes (Other)
  Sender: FDA-Public Use
  Company Number: JP-AVENTIS-200813125JP

PATIENT

DRUGS (2)
  1. TAXOTERE [Suspect]
     Route: 041
  2. UNKNOWN DRUG [Concomitant]

REACTIONS (1)
  - SCLERODERMA [None]
